FAERS Safety Report 5682118-9 (Version None)
Quarter: 2008Q1

REPORT INFORMATION
  Report Type: 
  Country: None (occurrence: None)
  Receive Date: 20080327
  Receipt Date: 20070409
  Transmission Date: 20080703
  Serious: No
  Sender: FDA-Public Use
  Company Number: US-BAYER-US-2007-013053

PATIENT
  Age: 27 Year
  Sex: Female
  Weight: 72 kg

DRUGS (1)
  1. MIRENA [Suspect]
     Indication: CONTRACEPTION
     Route: 015
     Dates: start: 20060401

REACTIONS (4)
  - AMENORRHOEA [None]
  - HAEMATOCHEZIA [None]
  - METRORRHAGIA [None]
  - WEIGHT DECREASED [None]
